FAERS Safety Report 9396347 (Version 1)
Quarter: 2013Q3

REPORT INFORMATION
  Report Type: Spontaneous
  Country: US (occurrence: US)
  Receive Date: 20130711
  Receipt Date: 20130711
  Transmission Date: 20140515
  Serious: No
  Sender: FDA-Public Use
  Company Number: US-BIOGENIDEC-2013BI009124

PATIENT
  Sex: Male

DRUGS (3)
  1. AVONEX [Suspect]
     Indication: MULTIPLE SCLEROSIS
     Route: 030
  2. AVONEX [Suspect]
     Indication: MULTIPLE SCLEROSIS
     Route: 030
     Dates: start: 20120929
  3. TYLENOL [Concomitant]
     Indication: PREMEDICATION

REACTIONS (3)
  - Muscle rigidity [Recovered/Resolved]
  - Musculoskeletal stiffness [Recovered/Resolved]
  - Drug ineffective [Recovered/Resolved]
